FAERS Safety Report 21254212 (Version 1)
Quarter: 2022Q3

REPORT INFORMATION
  Report Type: Spontaneous
  Country: US (occurrence: None)
  Receive Date: 20220824
  Receipt Date: 20220824
  Transmission Date: 20221026
  Serious: No
  Sender: FDA-Public Use
  Company Number: None

PATIENT
  Sex: 0

DRUGS (2)
  1. LIDOCAINE [Suspect]
     Active Substance: LIDOCAINE
  2. MUPIROCIN [Suspect]
     Active Substance: MUPIROCIN

REACTIONS (3)
  - Product packaging confusion [None]
  - Circumstance or information capable of leading to medication error [None]
  - Wrong drug [None]

NARRATIVE: CASE EVENT DATE: 20220810
